FAERS Safety Report 18057350 (Version 1)
Quarter: 2020Q3

REPORT INFORMATION
  Report Type: Spontaneous
  Country: PL (occurrence: PL)
  Receive Date: 20200722
  Receipt Date: 20200722
  Transmission Date: 20201103
  Serious: Yes (Other)
  Sender: FDA-Public Use
  Company Number: NVSC2020PL200568

PATIENT
  Age: 13 Year
  Sex: Male
  Weight: 59 kg

DRUGS (8)
  1. METRONIDAZOLE. [Concomitant]
     Active Substance: METRONIDAZOLE
     Indication: PRODUCT USED FOR UNKNOWN INDICATION
     Dosage: 500 MG, Q8H
     Route: 042
     Dates: start: 20200103, end: 20200116
  2. AMOKSIKLAV [Suspect]
     Active Substance: AMOXICILLIN\CLAVULANATE POTASSIUM
     Indication: EAR DISORDER
     Dosage: 600 MG, Q8H
     Route: 042
     Dates: start: 20200103, end: 20200103
  3. RELANIUM [Concomitant]
     Indication: PRODUCT USED FOR UNKNOWN INDICATION
     Dosage: 5 MG, Q6H
     Route: 065
     Dates: start: 20200103, end: 20200120
  4. PARACETAMOL [Concomitant]
     Active Substance: ACETAMINOPHEN
     Indication: PRODUCT USED FOR UNKNOWN INDICATION
     Dosage: 400 MG, Q8H
     Route: 042
     Dates: start: 20200103, end: 20200120
  5. LACIDOFIL [Concomitant]
     Active Substance: LACTOBACILLUS ACIDOPHILUS\LACTOBACILLUS RHAMNOSUS
     Indication: PRODUCT USED FOR UNKNOWN INDICATION
     Dosage: 1 DF, Q12H
     Route: 065
     Dates: start: 20200103, end: 20200120
  6. GABAPENTIN. [Concomitant]
     Active Substance: GABAPENTIN
     Indication: PRODUCT USED FOR UNKNOWN INDICATION
     Dosage: 300 MG, Q6H
     Route: 065
     Dates: start: 20200103, end: 20200120
  7. THIAMINE. [Concomitant]
     Active Substance: THIAMINE
     Indication: PRODUCT USED FOR UNKNOWN INDICATION
     Dosage: 25 MG, QD
     Route: 065
     Dates: start: 20200103, end: 20200120
  8. IBUFEN [Concomitant]
     Indication: PRODUCT USED FOR UNKNOWN INDICATION
     Dosage: 200 MG, Q8H
     Route: 054
     Dates: start: 20200103, end: 20200106

REACTIONS (3)
  - Dyspnoea at rest [Recovered/Resolved]
  - Rash [Recovered/Resolved]
  - Erythema [Recovered/Resolved]

NARRATIVE: CASE EVENT DATE: 20200103
